FAERS Safety Report 8509065-9 (Version None)
Quarter: 2012Q3

REPORT INFORMATION
  Report Type: 
  Country: None (occurrence: None)
  Receive Date: 20120702
  Receipt Date: 20120615
  Transmission Date: 20120928
  Serious: Yes (Hospitalization, Other)
  Sender: FDA-Public Use
  Company Number: 2012SP025029

PATIENT
  Age: 62 Year
  Sex: Male

DRUGS (14)
  1. ZOLPIDEM [Concomitant]
  2. PEG-INTRON [Suspect]
     Indication: HEPATITIS C
     Dosage: 1.5 MCG/KG; QW; SC; 1.3 MCG/KG; QW; SC
     Route: 058
     Dates: start: 20120305, end: 20120416
  3. PEG-INTRON [Suspect]
     Indication: HEPATITIS C
     Dosage: 1.5 MCG/KG; QW; SC; 1.3 MCG/KG; QW; SC
     Route: 058
     Dates: start: 20120423
  4. REBETOL [Suspect]
     Indication: HEPATITIS C
     Dosage: 800 MG; QD; PO, 400 MG; QD; PO, 200 MG; QD; PO
     Route: 048
     Dates: start: 20120305, end: 20120325
  5. REBETOL [Suspect]
     Indication: HEPATITIS C
     Dosage: 800 MG; QD; PO, 400 MG; QD; PO, 200 MG; QD; PO
     Route: 048
     Dates: start: 20120326, end: 20120408
  6. REBETOL [Suspect]
     Indication: HEPATITIS C
     Dosage: 800 MG; QD; PO, 400 MG; QD; PO, 200 MG; QD; PO
     Route: 048
     Dates: start: 20120409
  7. TELAVIC (ANTIVIRALS NOS) [Suspect]
     Indication: HEPATITIS C
     Dosage: 2250 MG; QD;PO, 1500 MG; QD; PO
     Route: 048
     Dates: start: 20120305, end: 20120501
  8. TELAVIC (ANTIVIRALS NOS) [Suspect]
     Indication: HEPATITIS C
     Dosage: 2250 MG; QD;PO, 1500 MG; QD; PO
     Route: 048
     Dates: start: 20120502, end: 20120528
  9. OLOPATADINE HCL [Concomitant]
  10. ADALAT CC [Concomitant]
  11. LIVALO [Concomitant]
  12. URSO 250 [Concomitant]
  13. PREDNISOLONE [Concomitant]
  14. CANDESARTAN CILEXETIL [Concomitant]

REACTIONS (5)
  - RASH [None]
  - PRURITUS [None]
  - BLOOD CREATININE INCREASED [None]
  - HYPERURICAEMIA [None]
  - ORAL DISCOMFORT [None]
